FAERS Safety Report 5017748-0 (Version None)
Quarter: 2006Q2

REPORT INFORMATION
  Report Type: 
  Country: None (occurrence: None)
  Receive Date: 20060605
  Receipt Date: 20060405
  Transmission Date: 20061013
  Serious: Yes (Hospitalization, Other)
  Sender: FDA-Public Use
  Company Number: US-AVENTIS-200613626GDDC

PATIENT
  Age: 15 Year
  Sex: Female
  Weight: 63 kg

DRUGS (9)
  1. KETEK [Suspect]
     Indication: TONSILLITIS
     Route: 048
     Dates: start: 20060327, end: 20060403
  2. KETEK [Suspect]
     Indication: PHARYNGITIS
     Route: 048
     Dates: start: 20060327, end: 20060403
  3. EFFEXOR [Concomitant]
     Indication: DEPRESSION
     Route: 048
     Dates: start: 20060101
  4. IBUPROFEN [Concomitant]
     Indication: MIGRAINE
     Route: 048
     Dates: start: 20060331
  5. BENADRYL [Concomitant]
     Indication: SLEEP DISORDER
     Dosage: DOSE: UNK
     Route: 048
     Dates: start: 20060304
  6. PREDNISONE [Concomitant]
     Indication: HYPERSENSITIVITY
     Route: 048
     Dates: start: 20060406, end: 20060410
  7. ATARAX [Concomitant]
     Indication: HYPERSENSITIVITY
     Route: 048
     Dates: start: 20060403
  8. METHYLPREDNISOLONE [Concomitant]
     Indication: HYPERSENSITIVITY
     Route: 042
     Dates: start: 20060404, end: 20060406
  9. MAXALT [Concomitant]
     Indication: MIGRAINE
     Route: 048
     Dates: start: 20060413

REACTIONS (10)
  - ARTHRALGIA [None]
  - BLOOD CHLORIDE INCREASED [None]
  - BLOOD CREATININE INCREASED [None]
  - DEHYDRATION [None]
  - HYPERSENSITIVITY [None]
  - JOINT SWELLING [None]
  - LIVER FUNCTION TEST ABNORMAL [None]
  - RASH [None]
  - SERUM SICKNESS [None]
  - VOMITING [None]
